FAERS Safety Report 5309696-3 (Version None)
Quarter: 2007Q2

REPORT INFORMATION
  Report Type: 
  Country: None (occurrence: None)
  Receive Date: 20070427
  Receipt Date: 20070420
  Transmission Date: 20071010
  Serious: Yes (Death, Hospitalization)
  Sender: FDA-Public Use
  Company Number: FR-AMGEN-UK216122

PATIENT
  Sex: Male
  Weight: 43 kg

DRUGS (13)
  1. MIMPARA [Suspect]
     Indication: HYPERPARATHYROIDISM SECONDARY
     Route: 048
     Dates: start: 20050801, end: 20061109
  2. DEDROGYL [Concomitant]
  3. KAYEXALATE [Concomitant]
  4. CALCIUM CHLORIDE [Concomitant]
  5. ATARAX [Concomitant]
  6. BISOPRODOL FUMARATE [Concomitant]
  7. ASPEGIC 1000 [Concomitant]
  8. PRAVASTATIN [Concomitant]
  9. VASTAREL [Concomitant]
  10. DEROXAT [Concomitant]
  11. ALBUMIN (HUMAN) [Concomitant]
  12. ARANESP [Concomitant]
  13. ZOMETA [Concomitant]

REACTIONS (1)
  - STATUS EPILEPTICUS [None]
